FAERS Safety Report 7024771-3 (Version None)
Quarter: 2010Q4

REPORT INFORMATION
  Report Type: 
  Country: None (occurrence: None)
  Receive Date: 20101001
  Receipt Date: 20100921
  Transmission Date: 20110411
  Serious: Yes (Hospitalization, Other)
  Sender: FDA-Public Use
  Company Number: DE-CUBIST-2010S1001214

PATIENT
  Age: 75 Year
  Sex: Male
  Weight: 75 kg

DRUGS (8)
  1. CUBICIN [Suspect]
     Indication: DIABETIC FOOT
     Route: 042
     Dates: start: 20100129, end: 20100201
  2. CUBICIN [Suspect]
     Indication: SOFT TISSUE INFECTION
     Route: 042
     Dates: start: 20100129, end: 20100201
  3. CUBICIN [Suspect]
     Indication: DIABETIC ULCER
     Route: 042
     Dates: start: 20100129, end: 20100201
  4. CUBICIN [Suspect]
     Route: 042
     Dates: start: 20100214, end: 20100218
  5. CUBICIN [Suspect]
     Route: 042
     Dates: start: 20100214, end: 20100218
  6. CUBICIN [Suspect]
     Route: 042
     Dates: start: 20100214, end: 20100218
  7. CEFUROXIME [Concomitant]
     Indication: PRODUCT USED FOR UNKNOWN INDICATION
  8. CLOPIDOGREL [Concomitant]
     Indication: PRODUCT USED FOR UNKNOWN INDICATION
     Dates: start: 20100130

REACTIONS (3)
  - ANAEMIA [None]
  - ARM AMPUTATION [None]
  - SEPSIS [None]
